FAERS Safety Report 12240788 (Version 1)
Quarter: 2016Q2

REPORT INFORMATION
  Report Type: Spontaneous
  Country: FR (occurrence: FR)
  Receive Date: 20160406
  Receipt Date: 20160406
  Transmission Date: 20160815
  Serious: Yes (Other)
  Sender: FDA-Public Use
  Company Number: FR-ACCORD-039433

PATIENT
  Age: 79 Year
  Sex: Male

DRUGS (9)
  1. TEMESTA [Concomitant]
     Active Substance: LORAZEPAM
     Dosage: 3 TABLETS PER DAY
  2. OXALIPLATINE ACCORD [Suspect]
     Active Substance: OXALIPLATIN
     Indication: ADENOCARCINOMA OF COLON
     Dosage: REDUCED OF 30% (119 MG),
     Route: 042
     Dates: start: 20151125, end: 20151223
  3. FLUOROURACILE ACCORD [Suspect]
     Active Substance: FLUOROURACIL
     Indication: ADENOCARCINOMA OF COLON
     Dosage: DURING 44 HOURS
     Route: 042
     Dates: start: 20151125, end: 20160126
  4. LEUCOVORIN. [Suspect]
     Active Substance: LEUCOVORIN
     Indication: ADENOCARCINOMA OF COLON
  5. MOPRAL [Concomitant]
     Active Substance: OMEPRAZOLE SODIUM
     Dosage: STRENGTH: 20 MG, 1 TABLET PER DAY
  6. AVLOCARDYL [Concomitant]
     Active Substance: PROPRANOLOL HYDROCHLORIDE
     Dosage: HALF A TABLET ON MORNING AND HALF A TABLET ON EVENING
  7. TRANXENE T-TAB [Concomitant]
     Active Substance: CLORAZEPATE DIPOTASSIUM
     Dosage: STRENGTH: 5 MG
  8. BIPRETERAX [Concomitant]
     Active Substance: INDAPAMIDE\PERINDOPRIL
     Dosage: 1 TABLET
  9. AVODART [Concomitant]
     Active Substance: DUTASTERIDE
     Dosage: 1 TABLET PER DAY

REACTIONS (4)
  - Paraesthesia [Recovered/Resolved]
  - Diarrhoea [Not Recovered/Not Resolved]
  - Diplopia [Not Recovered/Not Resolved]
  - Asthenia [Unknown]

NARRATIVE: CASE EVENT DATE: 20160106
